FAERS Safety Report 8959884 (Version 1)
Quarter: 2012Q4

REPORT INFORMATION
  Report Type: 
  Country: US (occurrence: US)
  Receive Date: 20121212
  Receipt Date: 20121212
  Transmission Date: 20130627
  Serious: Yes (Other)
  Sender: FDA-Public Use
  Company Number: US-NOVOPROD-365922

PATIENT
  Age: 47 Year
  Sex: Female
  Weight: 136.5 kg

DRUGS (3)
  1. NOVOLOG FLEXPEN [Suspect]
     Indication: TYPE 2 DIABETES MELLITUS
     Dosage: sliding scale
     Route: 058
  2. LISINOPRIL + HIDROCLOROTIAZIDA [Concomitant]
     Indication: HYPERTENSION
     Dosage: 20/12.5 mg, qd
     Route: 048
  3. OMEPRAZOL                          /00661201/ [Concomitant]
     Indication: ABDOMINAL DISCOMFORT

REACTIONS (3)
  - Abdominal pain upper [Not Recovered/Not Resolved]
  - Pain in extremity [Not Recovered/Not Resolved]
  - Back pain [Not Recovered/Not Resolved]
